FAERS Safety Report 18333885 (Version 1)
Quarter: 2020Q4

REPORT INFORMATION
  Report Type: Spontaneous
  Country: US (occurrence: US)
  Receive Date: 20201001
  Receipt Date: 20201001
  Transmission Date: 20210113
  Serious: Yes (Hospitalization, Other)
  Sender: FDA-Public Use
  Company Number: US-SUN PHARMACEUTICAL INDUSTRIES LTD-2020R1-262831

PATIENT
  Age: 96 Year
  Sex: Female
  Weight: 45 kg

DRUGS (7)
  1. DONEPEZIL. [Suspect]
     Active Substance: DONEPEZIL
     Dosage: 10 MILLIGRAM, DAILY
     Route: 065
  2. DONEPEZIL. [Suspect]
     Active Substance: DONEPEZIL
     Dosage: 10 MILLIGRAM, DAILY
     Route: 065
  3. DONEPEZIL. [Suspect]
     Active Substance: DONEPEZIL
     Dosage: 5 MILLIGRAM, DAILY
     Route: 065
  4. DONEPEZIL. [Suspect]
     Active Substance: DONEPEZIL
     Dosage: 2.5 MILLIGRAM, DAILY
     Route: 065
  5. METOPROLOL. [Suspect]
     Active Substance: METOPROLOL
     Indication: PRODUCT USED FOR UNKNOWN INDICATION
     Dosage: 50 MILLIGRAM, NIGHTLY
     Route: 065
  6. DONEPEZIL. [Suspect]
     Active Substance: DONEPEZIL
     Indication: PRODUCT USED FOR UNKNOWN INDICATION
     Dosage: 05 MILLIGRAM, DAILY
     Route: 065
  7. METOPROLOL. [Suspect]
     Active Substance: METOPROLOL
     Dosage: 25 MILLIGRAM, NIGHTLY
     Route: 065

REACTIONS (14)
  - Toxicity to various agents [Recovered/Resolved]
  - Hypocapnia [Recovered/Resolved]
  - Salivary hypersecretion [Recovered/Resolved]
  - Vomiting [Recovered/Resolved]
  - Abdominal pain [Not Recovered/Not Resolved]
  - Bradycardia [Recovered/Resolved]
  - Hypothermia [Recovered/Resolved]
  - Mental status changes [Recovered/Resolved]
  - Leukocytosis [Recovered/Resolved]
  - Nausea [Recovered/Resolved]
  - Fatigue [Recovered/Resolved]
  - Electrocardiogram T wave abnormal [Recovered/Resolved]
  - Diarrhoea [Not Recovered/Not Resolved]
  - Hyperglycaemia [Recovered/Resolved]
